FAERS Safety Report 7366309-7 (Version None)
Quarter: 2011Q1

REPORT INFORMATION
  Report Type: 
  Country: None (occurrence: None)
  Receive Date: 20110322
  Receipt Date: 20110308
  Transmission Date: 20110831
  Serious: Yes (Hospitalization)
  Sender: FDA-Public Use
  Company Number: US-JNJFOC-20100601981

PATIENT
  Sex: Female
  Weight: 42.3 kg

DRUGS (4)
  1. REMICADE [Suspect]
     Route: 042
  2. DRUGS FOR ACID RELATED DISORDERS [Concomitant]
  3. PREDNISONE [Concomitant]
  4. REMICADE [Suspect]
     Indication: CROHN'S DISEASE
     Dosage: TOTAL 7 DOSES
     Route: 042

REACTIONS (1)
  - OBSTRUCTION [None]
